FAERS Safety Report 24141840 (Version 1)
Quarter: 2024Q3

REPORT INFORMATION
  Report Type: Spontaneous
  Country: BR (occurrence: BR)
  Receive Date: 20240726
  Receipt Date: 20240726
  Transmission Date: 20241017
  Serious: Yes (Hospitalization, Other)
  Sender: BRACCO
  Company Number: BR-BRACCO-2024BR04446

PATIENT
  Age: 29 Year
  Sex: Female

DRUGS (1)
  1. IOPAMIDOL [Suspect]
     Active Substance: IOPAMIDOL
     Indication: Computerised tomogram abdomen
     Dosage: 90 ML, SINGLE
     Route: 042
     Dates: start: 20240713, end: 20240713

REACTIONS (2)
  - Pneumopericardium [Unknown]
  - Cough [Unknown]

NARRATIVE: CASE EVENT DATE: 20240713
